FAERS Safety Report 5714733-8 (Version None)
Quarter: 2008Q2

REPORT INFORMATION
  Report Type: 
  Country: None (occurrence: None)
  Receive Date: 20080423
  Receipt Date: 20050504
  Transmission Date: 20081010
  Serious: Yes (Death)
  Sender: FDA-Public Use
  Company Number: FI-ROCHE-403723

PATIENT
  Sex: Female

DRUGS (4)
  1. CAPECITABINE [Suspect]
     Indication: BREAST CANCER
     Dosage: GIVEN ON DAYS ONE TO FIFTEEN OF EACH THREE WEEK CYCLE (FIRST DOSE IN EVENING OF DAY 1 AND LAST DOSE+
     Route: 048
     Dates: start: 20050413, end: 20050420
  2. DOCETAXEL [Suspect]
     Indication: BREAST CANCER
     Dosage: GIVEN ON DAY ONE OF EACH THREE WEEK CYCLE
     Route: 042
     Dates: start: 20050413, end: 20050420
  3. METOCLOPRAMIDE [Concomitant]
  4. RANITIDINE [Concomitant]

REACTIONS (1)
  - DEATH [None]
